FAERS Safety Report 8015814-9 (Version None)
Quarter: 2011Q4

REPORT INFORMATION
  Report Type: 
  Country: None (occurrence: None)
  Receive Date: 20111230
  Receipt Date: 20100309
  Transmission Date: 20120403
  Serious: Yes (Hospitalization, Other)
  Sender: FDA-Public Use
  Company Number: PHHY2010TW17435

PATIENT
  Sex: Female

DRUGS (2)
  1. GLEEVEC [Suspect]
     Dosage: 2 PILLS IN THE MORNING AND EVENING
  2. GLEEVEC [Suspect]
     Indication: GASTROINTESTINAL STROMAL TUMOUR
     Dosage: 400 MG, UNK
     Route: 048

REACTIONS (7)
  - TUMOUR PAIN [None]
  - BONE PAIN [None]
  - ABDOMINAL PAIN [None]
  - NEOPLASM [None]
  - SKIN EXFOLIATION [None]
  - MALAISE [None]
  - DEPRESSION [None]
